FAERS Safety Report 9506069 (Version 1)
Quarter: 2013Q1

REPORT INFORMATION
  Report Type: Spontaneous
  Country: US (occurrence: None)
  Receive Date: 20130305
  Receipt Date: 20130305
  Transmission Date: 20140127
  Serious: Yes (Other)
  Sender: FDA-Public Use
  Company Number: 1000040809

PATIENT
  Age: 64 Year
  Sex: Male

DRUGS (9)
  1. DALIRESP [Suspect]
     Indication: CHRONIC OBSTRUCTIVE PULMONARY DISEASE
     Route: 048
     Dates: start: 20120924, end: 201211
  2. FAMOTIDINE(FAMOTIDINE)(FAMOTIDINE) [Concomitant]
  3. FLOMAX(TAMSULOSIN) (TAMSULOSIN) [Concomitant]
  4. PROSCAR(FINASTERIDE)(FINASTERIDE) [Concomitant]
  5. LOVASTATIN [Concomitant]
  6. SYMBICORT [Concomitant]
  7. SPIRIVA [Concomitant]
  8. ALBUTEROL [Concomitant]
  9. VICODIN [Concomitant]

REACTIONS (1)
  - Suicidal ideation [None]
